FAERS Safety Report 9353565 (Version 1)
Quarter: 2013Q2

REPORT INFORMATION
  Report Type: Spontaneous
  Country: US (occurrence: US)
  Receive Date: 20130618
  Receipt Date: 20130618
  Transmission Date: 20140414
  Serious: Yes (Other)
  Sender: FDA-Public Use
  Company Number: US-PFIZER INC-2005132850

PATIENT
  Age: 51 Year
  Sex: Male
  Weight: 86.18 kg

DRUGS (11)
  1. LYRICA [Suspect]
     Indication: COMPLEX REGIONAL PAIN SYNDROME
     Dosage: 200 MG, 2X/DAY; DOSAGE FORM: UNKNOWN, DAILY DOSE QTY: 400 MG
     Route: 048
     Dates: start: 20050916, end: 20050921
  2. LYRICA [Suspect]
     Dosage: 50 MG
     Dates: start: 20060210
  3. NEURONTIN [Suspect]
     Indication: PAIN
     Dosage: 100 MG, 3X/DAY; DOSAGE FORM: UNKNOWN, DAILY DOSE QTY: 300 MG
     Route: 048
     Dates: start: 1999, end: 1999
  4. ALPRAZOLAM [Suspect]
     Indication: PANIC ATTACK
     Dosage: UNK
     Route: 065
     Dates: start: 20050916
  5. IBUPROFEN [Suspect]
     Dosage: UNK
     Route: 065
  6. TRAZODONE [Concomitant]
     Dosage: UNK
     Route: 065
  7. MS CONTIN [Concomitant]
     Dosage: UNK
     Route: 065
  8. SOMA [Concomitant]
     Dosage: UNK
     Route: 065
  9. LIDOCAINE [Concomitant]
     Dosage: UNK
     Route: 065
  10. LORTAB [Concomitant]
     Dosage: UNK
     Route: 065
  11. NIFEDIPINE [Concomitant]
     Dosage: UNK
     Route: 065

REACTIONS (31)
  - Mental impairment [Unknown]
  - Road traffic accident [Unknown]
  - Haemorrhage [Recovering/Resolving]
  - Concussion [Unknown]
  - Complex regional pain syndrome [Unknown]
  - Umbilical hernia [Unknown]
  - Panic attack [Not Recovered/Not Resolved]
  - Mania [Unknown]
  - Aggression [Recovered/Resolved]
  - Memory impairment [Unknown]
  - Somnolence [Recovered/Resolved]
  - Dizziness [Unknown]
  - Hyperhidrosis [Unknown]
  - Cold sweat [Unknown]
  - Balance disorder [Unknown]
  - Gait disturbance [Unknown]
  - Irritability [Not Recovered/Not Resolved]
  - Anxiety [Unknown]
  - Dysgraphia [Recovering/Resolving]
  - Dysphemia [Unknown]
  - Impaired driving ability [Unknown]
  - Abnormal dreams [Recovered/Resolved]
  - Headache [Not Recovered/Not Resolved]
  - Visual brightness [Unknown]
  - Screaming [Unknown]
  - Mydriasis [Unknown]
  - Insomnia [Unknown]
  - Pain [Unknown]
  - Gastric disorder [Unknown]
  - Nausea [Unknown]
  - Fatigue [Not Recovered/Not Resolved]
